FAERS Safety Report 7682838-0 (Version None)
Quarter: 2011Q3

REPORT INFORMATION
  Report Type: 
  Country: None (occurrence: None)
  Receive Date: 20110812
  Receipt Date: 20110812
  Transmission Date: 20111222
  Serious: No
  Sender: FDA-Public Use
  Company Number: None

PATIENT
  Age: 65 Year
  Sex: Male
  Weight: 92.3 kg

DRUGS (2)
  1. CISPLATIN [Suspect]
     Dosage: 107 MG ONCE IV
     Route: 042
     Dates: start: 20101227, end: 20101227
  2. DOCETAXEL [Suspect]
     Dosage: 161 MG ONCE IV
     Route: 042
     Dates: start: 20101227, end: 20101227

REACTIONS (1)
  - PERONEAL NERVE PALSY [None]
